FAERS Safety Report 4278388-4 (Version None)
Quarter: 2004Q1

REPORT INFORMATION
  Report Type: 
  Country: None (occurrence: None)
  Receive Date: 20040122
  Receipt Date: 20040122
  Transmission Date: 20041129
  Serious: Yes (Other)
  Sender: FDA-Public Use
  Company Number: None

PATIENT
  Age: 68 Year
  Sex: Female
  Weight: 70 kg

DRUGS (2)
  1. BIAXIN [Suspect]
     Indication: GASTROINTESTINAL HAEMORRHAGE
     Dosage: BID
     Dates: start: 20031222, end: 20031229
  2. BIAXIN [Suspect]
     Indication: THROMBOCYTOPENIA
     Dosage: BID
     Dates: start: 20031222, end: 20031229

REACTIONS (2)
  - GASTROINTESTINAL HAEMORRHAGE [None]
  - THROMBOCYTOPENIA [None]
